FAERS Safety Report 7017764-3 (Version None)
Quarter: 2010Q3

REPORT INFORMATION
  Report Type: 
  Country: None (occurrence: None)
  Receive Date: 20100909
  Receipt Date: 20100623
  Transmission Date: 20110219
  Serious: No
  Sender: FDA-Public Use
  Company Number: 2010SP035486

PATIENT
  Age: 27 Year
  Sex: Male

DRUGS (3)
  1. SAPHRIS [Suspect]
     Indication: AFFECTIVE DISORDER
     Dosage: 5 MG;HS;SL
     Route: 060
     Dates: start: 20100601, end: 20100601
  2. INVEGA (CON.) [Concomitant]
  3. LAMICTAL (CON.) [Concomitant]

REACTIONS (5)
  - AGITATION [None]
  - ANGER [None]
  - INAPPROPRIATE SCHEDULE OF DRUG ADMINISTRATION [None]
  - OVERDOSE [None]
  - UNDERDOSE [None]
